FAERS Safety Report 18264655 (Version 3)
Quarter: 2020Q4

REPORT INFORMATION
  Report Type: Spontaneous
  Country: JP (occurrence: JP)
  Receive Date: 20200914
  Receipt Date: 20201013
  Transmission Date: 20210113
  Serious: Yes (Life-Threatening, Hospitalization)
  Sender: FDA-Public Use
  Company Number: JP-ELI_LILLY_AND_COMPANY-JP202009005359

PATIENT
  Age: 81 Year
  Sex: Male
  Weight: 61 kg

DRUGS (9)
  1. DULOXETINE HYDROCHLORIDE. [Suspect]
     Active Substance: DULOXETINE HYDROCHLORIDE
     Dosage: 40 MG, DAILY
     Route: 048
     Dates: start: 20200814, end: 20200818
  2. AMLODIPINE [Concomitant]
     Active Substance: AMLODIPINE BESYLATE
     Indication: HYPERTENSION
     Dosage: 5 MG, DAILY
     Route: 048
     Dates: start: 20200804
  3. DULOXETINE HYDROCHLORIDE. [Suspect]
     Active Substance: DULOXETINE HYDROCHLORIDE
     Indication: SPINAL STENOSIS
     Dosage: 20 MG, DAILY
     Route: 048
     Dates: start: 20200806, end: 20200813
  4. MAGMITT [Concomitant]
     Active Substance: MAGNESIUM OXIDE
     Indication: CONSTIPATION
     Dosage: 660 MG, DAILY
     Route: 048
     Dates: start: 20200804
  5. HYDREA [Concomitant]
     Active Substance: HYDROXYUREA
     Indication: PROSTATE CANCER
     Dosage: 50 MG, BID
     Route: 048
     Dates: start: 20200408
  6. BICALUTAMIDE OD [Concomitant]
     Indication: PROSTATE CANCER
     Dosage: 80 MG, DAILY
     Route: 048
     Dates: start: 20200804
  7. WARFARIN [Concomitant]
     Active Substance: WARFARIN
     Indication: ATRIAL FIBRILLATION
     Dosage: 2.5 MG, DAILY
     Route: 048
     Dates: start: 20200804
  8. URIEF [Concomitant]
     Active Substance: SILODOSIN
     Indication: PROSTATE CANCER
     Dosage: 4 MG, BID
     Route: 048
     Dates: start: 20200804
  9. LYRICA [Concomitant]
     Active Substance: PREGABALIN
     Indication: SPINAL STENOSIS
     Dosage: 50 MG, BID
     Route: 048
     Dates: start: 20200804

REACTIONS (15)
  - Cardiac failure congestive [Recovering/Resolving]
  - Constipation [Unknown]
  - Cognitive disorder [Unknown]
  - Pelvic fracture [Unknown]
  - Enterocolitis [Unknown]
  - Flatulence [Recovering/Resolving]
  - Somnolence [Recovering/Resolving]
  - Fall [Recovered/Resolved]
  - Wheezing [Recovering/Resolving]
  - Hyponatraemia [Recovering/Resolving]
  - Hypophagia [Unknown]
  - Inappropriate antidiuretic hormone secretion [Recovering/Resolving]
  - Fall [Recovered/Resolved]
  - Asthma [Unknown]
  - Decreased appetite [Recovering/Resolving]

NARRATIVE: CASE EVENT DATE: 20200809
